FAERS Safety Report 20129405 (Version 1)
Quarter: 2021Q4

REPORT INFORMATION
  Report Type: Spontaneous
  Country: US (occurrence: US)
  Receive Date: 20211130
  Receipt Date: 20211130
  Transmission Date: 20220303
  Serious: Yes (Other)
  Sender: FDA-Public Use
  Company Number: US-LUPIN PHARMACEUTICALS INC.-2021-23105

PATIENT
  Age: 23 Year
  Sex: Female
  Weight: 47.62 kg

DRUGS (3)
  1. AZITHROMYCIN [Suspect]
     Active Substance: AZITHROMYCIN
     Indication: Cough
     Dosage: 2 DOSAGE FORM, SINGLE (FIRST DAY AT NIGHT)
     Route: 048
     Dates: start: 20211115
  2. AZITHROMYCIN [Suspect]
     Active Substance: AZITHROMYCIN
     Indication: Nasal congestion
     Dosage: 1 DOSAGE FORM, QD (FOR 4 DAYS AT NIGHT)
     Route: 048
  3. AZITHROMYCIN [Suspect]
     Active Substance: AZITHROMYCIN
     Indication: Lymphadenopathy

REACTIONS (2)
  - Haematochezia [Not Recovered/Not Resolved]
  - Rash [Not Recovered/Not Resolved]

NARRATIVE: CASE EVENT DATE: 20211116
